FAERS Safety Report 7442275-0 (Version None)
Quarter: 2011Q2

REPORT INFORMATION
  Report Type: 
  Country: None (occurrence: None)
  Receive Date: 20110425
  Receipt Date: 20110425
  Transmission Date: 20111010
  Serious: Yes (Other)
  Sender: FDA-Public Use
  Company Number: None

PATIENT
  Age: 60 Year
  Sex: Female
  Weight: 60.3284 kg

DRUGS (1)
  1. BUPROPION HCL [Suspect]

REACTIONS (2)
  - SKIN ODOUR ABNORMAL [None]
  - AFFECTIVE DISORDER [None]
